FAERS Safety Report 6699432-0 (Version None)
Quarter: 2010Q2

REPORT INFORMATION
  Report Type: 
  Country: None (occurrence: None)
  Receive Date: 20100426
  Receipt Date: 20100412
  Transmission Date: 20101027
  Serious: Yes (Hospitalization)
  Sender: FDA-Public Use
  Company Number: 232456J09USA

PATIENT
  Age: 41 Year
  Sex: Female
  Weight: 73 kg

DRUGS (13)
  1. REBIF [Suspect]
     Indication: MULTIPLE SCLEROSIS
     Dosage: 44 MCG, 3 IN 1 WK, SUBCUTANEOUS
     Route: 058
     Dates: start: 20081101
  2. MYSOLINE [Concomitant]
  3. POTASSIUM (POTASSIUM) [Concomitant]
  4. METHADONE HCL [Concomitant]
  5. PERCOCET [Concomitant]
  6. ZOLOFT [Concomitant]
  7. SEROQUEL [Concomitant]
  8. PAMELOR [Concomitant]
  9. BACLOFEN [Concomitant]
  10. NEURONTIN [Concomitant]
  11. PRILOSEC [Concomitant]
  12. PHENERGAN (PROMETHAZINE) [Concomitant]
  13. KEPPRA [Concomitant]

REACTIONS (14)
  - ASPARTATE AMINOTRANSFERASE INCREASED [None]
  - ATRIAL FIBRILLATION [None]
  - BACK PAIN [None]
  - CARDIAC ENZYMES INCREASED [None]
  - CHEST PAIN [None]
  - DYSPNOEA [None]
  - HAEMATOCRIT DECREASED [None]
  - HAEMOGLOBIN DECREASED [None]
  - INJECTION SITE ERYTHEMA [None]
  - INJECTION SITE RASH [None]
  - OEDEMA PERIPHERAL [None]
  - PLATELET COUNT DECREASED [None]
  - RENAL FAILURE [None]
  - VENTRICULAR TACHYCARDIA [None]
